FAERS Safety Report 8773599 (Version 3)
Quarter: 2012Q4

REPORT INFORMATION
  Report Type: 
  Country: US (occurrence: US)
  Receive Date: 20120907
  Receipt Date: 20120927
  Transmission Date: 20130627
  Serious: Yes (Hospitalization)
  Sender: FDA-Public Use
  Company Number: PHEH2012US017032

PATIENT
  Sex: Female

DRUGS (1)
  1. EXTAVIA [Suspect]
     Indication: MULTIPLE SCLEROSIS
     Dosage: 0.3 mg, QOD
     Route: 058
     Dates: start: 201112, end: 201207

REACTIONS (4)
  - Sepsis [Not Recovered/Not Resolved]
  - Urinary tract infection [Unknown]
  - Discomfort [Unknown]
  - Dehydration [Unknown]
